FAERS Safety Report 8992793 (Version 2)
Quarter: 2013Q1

REPORT INFORMATION
  Report Type: Spontaneous
  Country: FR (occurrence: FR)
  Receive Date: 20130102
  Receipt Date: 20130227
  Transmission Date: 20140127
  Serious: Yes (Other)
  Sender: FDA-Public Use
  Company Number: FR-AMGEN-FRASP2012082831

PATIENT
  Age: 67 Year
  Sex: Female
  Weight: 57 kg

DRUGS (4)
  1. PROLIA [Suspect]
     Indication: OSTEOPOROSIS POSTMENOPAUSAL
     Dosage: 60 MG, UNK
     Route: 058
     Dates: start: 20120622
  2. ACTONEL [Concomitant]
     Indication: OSTEOPOROSIS POSTMENOPAUSAL
     Dosage: UNK
     Route: 048
     Dates: start: 2005, end: 2010
  3. UVEDOSE [Concomitant]
     Indication: OSTEOPOROSIS POSTMENOPAUSAL
     Dosage: UNK
     Route: 048
     Dates: start: 2012, end: 2012
  4. ESIDREX [Concomitant]
     Indication: HYPERCALCIURIA
     Dosage: UNK
     Route: 048
     Dates: start: 2005

REACTIONS (7)
  - Anxiety [Recovering/Resolving]
  - Insomnia [Recovering/Resolving]
  - Compulsions [Recovered/Resolved]
  - Depression [Recovered/Resolved]
  - Abnormal behaviour [Recovering/Resolving]
  - Restlessness [Recovering/Resolving]
  - Psychomotor hyperactivity [Recovering/Resolving]
